FAERS Safety Report 5300243-9 (Version None)
Quarter: 2007Q2

REPORT INFORMATION
  Report Type: 
  Country: None (occurrence: None)
  Receive Date: 20070418
  Receipt Date: 20070411
  Transmission Date: 20071010
  Serious: Yes (Hospitalization)
  Sender: FDA-Public Use
  Company Number: FR-JNJFOC-20070402512

PATIENT
  Age: 38 Year
  Sex: Female

DRUGS (2)
  1. CAELYX [Suspect]
     Indication: OVARIAN CANCER
     Route: 042
  2. ENDOXAN [Concomitant]
     Indication: OVARIAN CANCER
     Route: 065

REACTIONS (1)
  - FEBRILE BONE MARROW APLASIA [None]
